FAERS Safety Report 16016004 (Version 1)
Quarter: 2019Q1

REPORT INFORMATION
  Report Type: Spontaneous
  Country: GB (occurrence: GB)
  Receive Date: 20190228
  Receipt Date: 20190228
  Transmission Date: 20190418
  Serious: Yes (Hospitalization)
  Sender: FDA-Public Use
  Company Number: GB-ACCORD-109425

PATIENT
  Age: 76 Year
  Sex: Female

DRUGS (17)
  1. QVAR [Concomitant]
     Active Substance: BECLOMETHASONE DIPROPIONATE
     Dosage: PUFFS
  2. PREGABALIN. [Concomitant]
     Active Substance: PREGABALIN
  3. ALVERINE [Concomitant]
     Active Substance: ALVERINE
  4. SALBUTAMOL [Concomitant]
     Active Substance: ALBUTEROL
  5. QUININE [Concomitant]
     Active Substance: QUININE
     Dosage: AT NIGHT.
  6. BECONASE AQ [Concomitant]
     Active Substance: BECLOMETHASONE DIPROPIONATE MONOHYDRATE
     Dosage: AT NIGHT
     Route: 045
  7. SIMVASTATIN. [Concomitant]
     Active Substance: SIMVASTATIN
     Dosage: AT NIGHT.
  8. LACTULOSE. [Concomitant]
     Active Substance: LACTULOSE
  9. PARACETAMOL [Concomitant]
     Active Substance: ACETAMINOPHEN
  10. TOPIRAMATE. [Concomitant]
     Active Substance: TOPIRAMATE
     Dosage: AT NIGHT.
  11. ADCAL-D3 [Concomitant]
     Active Substance: CALCIUM CARBONATE\CHOLECALCIFEROL
  12. AMITRIPTYLINE [Concomitant]
     Active Substance: AMITRIPTYLINE
     Dosage: AT NIGHT.
  13. SUMATRIPTAN. [Concomitant]
     Active Substance: SUMATRIPTAN
  14. OMEPRAZOLE. [Concomitant]
     Active Substance: OMEPRAZOLE
  15. CLOPIDOGREL [Concomitant]
     Active Substance: CLOPIDOGREL BISULFATE
  16. FUROSEMIDE. [Suspect]
     Active Substance: FUROSEMIDE
     Indication: PRODUCT USED FOR UNKNOWN INDICATION
     Dosage: IN THE MORNING.
     Route: 048
     Dates: end: 20180615
  17. BISOPROLOL [Concomitant]
     Active Substance: BISOPROLOL

REACTIONS (1)
  - Acute kidney injury [Recovered/Resolved]

NARRATIVE: CASE EVENT DATE: 20180615
